FAERS Safety Report 4916036-8 (Version None)
Quarter: 2006Q1

REPORT INFORMATION
  Report Type: 
  Country: None (occurrence: None)
  Receive Date: 20060217
  Receipt Date: 20060126
  Transmission Date: 20060701
  Serious: Yes (Hospitalization, Other)
  Sender: FDA-Public Use
  Company Number: US-ABBOTT-06P-163-0323458-00

PATIENT
  Age: 25 Year
  Sex: Female

DRUGS (2)
  1. VALPROIC ACID [Suspect]
     Indication: OVERDOSE
     Dosage: OVERDOSE
     Route: 048
  2. VALPROIC ACID [Suspect]
     Indication: DRUG USE FOR UNKNOWN INDICATION

REACTIONS (7)
  - COMA [None]
  - DRUG LEVEL INCREASED [None]
  - HYPOTENSION [None]
  - INTENTIONAL DRUG MISUSE [None]
  - LACTIC ACIDOSIS [None]
  - OVERDOSE [None]
  - THROMBOCYTOPENIA [None]
